FAERS Safety Report 5363887-4 (Version None)
Quarter: 2007Q2

REPORT INFORMATION
  Report Type: 
  Country: None (occurrence: None)
  Receive Date: 20070530
  Receipt Date: 20070109
  Transmission Date: 20071010
  Serious: No
  Sender: FDA-Public Use
  Company Number: 2007PV028103

PATIENT
  Age: 54 Year
  Sex: Female
  Weight: 140.6151 kg

DRUGS (2)
  1. BYETTA [Suspect]
     Indication: DIABETES MELLITUS NON-INSULIN-DEPENDENT
     Dosage: 5 MCG; BID; SC
     Route: 058
     Dates: start: 20070105
  2. METFORMIN HCL [Concomitant]

REACTIONS (7)
  - DYSGEUSIA [None]
  - DYSPEPSIA [None]
  - HYPERHIDROSIS [None]
  - INJECTION SITE PAIN [None]
  - NAUSEA [None]
  - ORAL DISCOMFORT [None]
  - TREMOR [None]
